FAERS Safety Report 5013952-6 (Version None)
Quarter: 2006Q2

REPORT INFORMATION
  Report Type: 
  Country: None (occurrence: None)
  Receive Date: 20060525
  Receipt Date: 20060520
  Transmission Date: 20061013
  Serious: Yes (Other)
  Sender: FDA-Public Use
  Company Number: 223195

PATIENT
  Age: 55 Year
  Sex: Female

DRUGS (1)
  1. MABTHERA(RITUXIMAB) CONC FOR SOLUTION FOR INFUSION [Suspect]
     Dosage: INTRAVENOUS
     Route: 042

REACTIONS (5)
  - ALANINE AMINOTRANSFERASE INCREASED [None]
  - HEADACHE [None]
  - MALAISE [None]
  - PYREXIA [None]
  - SERUM SICKNESS [None]
